FAERS Safety Report 19178398 (Version 1)
Quarter: 2021Q2

REPORT INFORMATION
  Report Type: Report from Study
  Country: US (occurrence: US)
  Receive Date: 20210426
  Receipt Date: 20210426
  Transmission Date: 20210717
  Serious: Yes (Other)
  Sender: FDA-Public Use
  Company Number: US-AGIOS-2104US02689

PATIENT

DRUGS (1)
  1. TIBSOVO [Suspect]
     Active Substance: IVOSIDENIB
     Indication: MYELODYSPLASTIC SYNDROME
     Dosage: 250 MILLIGRAM, 2 TABLETS (500MG), QD
     Route: 048
     Dates: start: 20200205

REACTIONS (3)
  - Off label use [Unknown]
  - Osteomalacia [Unknown]
  - Blood pressure increased [Unknown]
